FAERS Safety Report 13924107 (Version 1)
Quarter: 2017Q3

REPORT INFORMATION
  Report Type: Spontaneous
  Country: FR (occurrence: FR)
  Receive Date: 20170831
  Receipt Date: 20170831
  Transmission Date: 20171127
  Serious: Yes (Death, Hospitalization)
  Sender: FDA-Public Use
  Company Number: FR-ACCORD-057816

PATIENT
  Age: 79 Year
  Sex: Male

DRUGS (15)
  1. INSULIN ASPART [Concomitant]
     Active Substance: INSULIN ASPART
     Indication: TYPE 2 DIABETES MELLITUS
     Dosage: IN THE MORNING
     Dates: start: 201612, end: 201703
  2. HYDROCHLOROTHIAZIDE. [Concomitant]
     Active Substance: HYDROCHLOROTHIAZIDE
     Route: 048
  3. INNOHEP [Concomitant]
     Active Substance: TINZAPARIN SODIUM
     Dosage: 14 000 U.I. ANTI XA/0.7 ML
     Route: 058
  4. PARACETAMOL [Concomitant]
     Active Substance: ACETAMINOPHEN
     Route: 048
  5. LEVEMIR [Concomitant]
     Active Substance: INSULIN DETEMIR
     Indication: TYPE 2 DIABETES MELLITUS
     Route: 058
     Dates: start: 201612, end: 201703
  6. NOVORAPID [Concomitant]
     Active Substance: INSULIN ASPART
     Indication: TYPE 2 DIABETES MELLITUS
     Dosage: IN THE MORNING
     Route: 058
     Dates: end: 20170421
  7. FOLINIC ACID [Concomitant]
     Active Substance: LEUCOVORIN
  8. IRBESARTAN. [Concomitant]
     Active Substance: IRBESARTAN
     Route: 048
  9. OXALIPLATIN HOSPIRA [Suspect]
     Active Substance: OXALIPLATIN
     Indication: ADENOCARCINOMA OF COLON
     Dosage: STRENGTH: 5 MG/ML
     Route: 042
     Dates: start: 20170322, end: 20170324
  10. LANSOPRAZOLE. [Concomitant]
     Active Substance: LANSOPRAZOLE
     Route: 048
  11. MECIR L.P. [Concomitant]
     Active Substance: TAMSULOSIN HYDROCHLORIDE
     Dosage: 0.4 MG
     Route: 048
  12. FLUOROURACIL ACCORD [Suspect]
     Active Substance: FLUOROURACIL
     Indication: ADENOCARCINOMA OF COLON
     Dosage: STRENGTH: 50 MG/ML
     Route: 042
     Dates: start: 20170322, end: 20170324
  13. AMLODIPINE [Concomitant]
     Active Substance: AMLODIPINE BESYLATE
     Route: 048
  14. BISOPROLOL [Concomitant]
     Active Substance: BISOPROLOL
     Route: 048
  15. PERMIXON [Concomitant]
     Active Substance: HERBALS\SAW PALMETTO
     Route: 048

REACTIONS (3)
  - Diabetic metabolic decompensation [Recovering/Resolving]
  - Blood glucose fluctuation [Recovering/Resolving]
  - Cerebrovascular accident [Fatal]

NARRATIVE: CASE EVENT DATE: 201703
